FAERS Safety Report 22973506 (Version 3)
Quarter: 2025Q2

REPORT INFORMATION
  Report Type: Spontaneous
  Country: US (occurrence: US)
  Receive Date: 20230922
  Receipt Date: 20250409
  Transmission Date: 20250717
  Serious: Yes (Other)
  Sender: PFIZER
  Company Number: US-PFIZER INC-202300305839

PATIENT
  Age: 66 Year
  Sex: Female

DRUGS (20)
  1. XELJANZ [Suspect]
     Active Substance: TOFACITINIB CITRATE
     Dosage: 5 MG, 2X/DAY, (5MG TWICE PER DAY ORALLY)
     Route: 048
     Dates: start: 20210708
  2. XELJANZ [Suspect]
     Active Substance: TOFACITINIB CITRATE
     Dosage: 5 MG, DAILY
     Route: 048
     Dates: start: 2024
  3. LITHIUM CARBONATE [Concomitant]
     Active Substance: LITHIUM CARBONATE
  4. LORAZEPAM [Concomitant]
     Active Substance: LORAZEPAM
  5. OXITRIPTAN [Concomitant]
     Active Substance: OXITRIPTAN
  6. MAGNESIUM [Concomitant]
     Active Substance: MAGNESIUM
  7. VITAMIN D3 [Concomitant]
     Active Substance: CHOLECALCIFEROL
  8. DICLOFENAC SODIUM [Concomitant]
     Active Substance: DICLOFENAC SODIUM
  9. PILOCARPINE HYDROCHLORIDE [Concomitant]
     Active Substance: PILOCARPINE HYDROCHLORIDE
  10. METHOTREXATE [Concomitant]
     Active Substance: METHOTREXATE
  11. NEBUPENT [Concomitant]
     Active Substance: PENTAMIDINE ISETHIONATE
  12. ALBUTEROL SULFATE [Concomitant]
     Active Substance: ALBUTEROL SULFATE
  13. VALERIAN [Concomitant]
     Active Substance: VALERIAN
  14. RESTASIS [Concomitant]
     Active Substance: CYCLOSPORINE
  15. ALBUTEROL SULFATE [Concomitant]
     Active Substance: ALBUTEROL SULFATE
  16. CLONAZEPAM [Concomitant]
     Active Substance: CLONAZEPAM
  17. MURO 128 [Concomitant]
     Active Substance: SODIUM CHLORIDE
  18. ADDERALL [Concomitant]
     Active Substance: AMPHETAMINE ASPARTATE\AMPHETAMINE SULFATE\DEXTROAMPHETAMINE SACCHARATE\DEXTROAMPHETAMINE SULFATE
  19. DEPLIN [LEVOMEFOLIC ACID] [Concomitant]
  20. VALERIAN ROOT [VALERIANA OFFICINALIS] [Concomitant]

REACTIONS (12)
  - Pneumocystis jirovecii pneumonia [Unknown]
  - Hip arthroplasty [Not Recovered/Not Resolved]
  - Nodule [Not Recovered/Not Resolved]
  - Pyrexia [Not Recovered/Not Resolved]
  - Peripheral swelling [Unknown]
  - Abdominal pain upper [Not Recovered/Not Resolved]
  - Constipation [Unknown]
  - Vomiting [Unknown]
  - Diarrhoea [Unknown]
  - Bronchitis [Unknown]
  - Post procedural infection [Unknown]
  - Pain in extremity [Unknown]

NARRATIVE: CASE EVENT DATE: 20221201
